FAERS Safety Report 21664973 (Version 1)
Quarter: 2022Q4

REPORT INFORMATION
  Report Type: Spontaneous
  Country: US (occurrence: None)
  Receive Date: 20221130
  Receipt Date: 20221130
  Transmission Date: 20230112
  Serious: No
  Sender: FDA-Public Use
  Company Number: 2022A366645

PATIENT
  Age: 76 Year
  Sex: Male
  Weight: 54 kg

DRUGS (1)
  1. SYMBICORT [Suspect]
     Active Substance: BUDESONIDE\FORMOTEROL FUMARATE DIHYDRATE
     Indication: Asthma
     Dosage: 160/4.5 MCG, 2 PUFFS TWO TIMES A DAY
     Route: 055
     Dates: start: 202206

REACTIONS (3)
  - Incorrect dose administered by device [Not Recovered/Not Resolved]
  - Wrong technique in device usage process [Recovered/Resolved]
  - Device delivery system issue [Unknown]

NARRATIVE: CASE EVENT DATE: 20220101
